FAERS Safety Report 4599693-8 (Version None)
Quarter: 2005Q1

REPORT INFORMATION
  Report Type: 
  Country: None (occurrence: None)
  Receive Date: 20050304
  Receipt Date: 20050304
  Transmission Date: 20050727
  Serious: Yes (Life-Threatening, Hospitalization)
  Sender: FDA-Public Use
  Company Number: None

PATIENT
  Age: 18 Year
  Sex: Male

DRUGS (2)
  1. GABITRIL [Suspect]
     Indication: BIPOLAR DISORDER
  2. SEROQUEL [Concomitant]

REACTIONS (6)
  - ANION GAP DECREASED [None]
  - BLOOD GLUCOSE INCREASED [None]
  - BLOOD PRESSURE INCREASED [None]
  - GRAND MAL CONVULSION [None]
  - HEART RATE INCREASED [None]
  - SOMNOLENCE [None]
